FAERS Safety Report 19201670 (Version 3)
Quarter: 2021Q2

REPORT INFORMATION
  Report Type: Report from Study
  Country: BR (occurrence: BR)
  Receive Date: 20210430
  Receipt Date: 20210512
  Transmission Date: 20210717
  Serious: Yes (Hospitalization)
  Sender: FDA-Public Use
  Company Number: BR-ROCHE-2751429

PATIENT
  Age: 66 Year
  Sex: Female
  Weight: 69 kg

DRUGS (22)
  1. CYCLOPHOSPHAMIDE. [Suspect]
     Active Substance: CYCLOPHOSPHAMIDE
     Indication: TRIPLE NEGATIVE BREAST CANCER
     Dosage: DATE OF MOST RECENT DOSE (990 MG) PRIOR TO SAE ONSET: 29/MAR/2021.
     Route: 042
     Dates: start: 20210329
  2. PANTOPRAZOLE [Concomitant]
     Active Substance: PANTOPRAZOLE
     Indication: GASTRIC ULCER
     Dates: start: 20210412, end: 20210423
  3. UREADIN [Concomitant]
     Route: 061
     Dates: start: 20210215
  4. BETNOVATE [Concomitant]
     Active Substance: BETAMETHASONE
     Dosage: 0.1 OTHER
     Route: 061
     Dates: start: 20210215, end: 20210315
  5. DECADRON [Concomitant]
     Active Substance: DEXAMETHASONE
     Route: 042
     Dates: start: 20210329, end: 20210329
  6. LANTUS [Concomitant]
     Active Substance: INSULIN GLARGINE
     Indication: DIABETES MELLITUS
     Dates: start: 20210412, end: 20210423
  7. PALONOSETRON. [Concomitant]
     Active Substance: PALONOSETRON HYDROCHLORIDE
     Route: 042
     Dates: start: 20210112, end: 20210112
  8. MUVINLAX [Concomitant]
     Active Substance: ELECTROLYTES NOS\POLYETHYLENE GLYCOL 3350
     Indication: CONSTIPATION
     Dates: start: 20210422, end: 20210423
  9. ATEZOLIZUMAB. [Suspect]
     Active Substance: ATEZOLIZUMAB
     Indication: TRIPLE NEGATIVE BREAST CANCER
     Dosage: ON 12/JAN/2021, SHE RECEIVED MOST RECENT DOSE OF ATEZOLIZUMAB PRIOR TO SECOND OCCURENCE OF ATEZOLIZU
     Route: 041
     Dates: start: 20201229
  10. DOXORUBICIN [Suspect]
     Active Substance: DOXORUBICIN
     Indication: TRIPLE NEGATIVE BREAST CANCER
     Dosage: DATE OF MOST RECENT DOSE (99 MG) PRIOR TO SAE ONSET:29/MAR/2021.
     Route: 042
     Dates: start: 20210329
  11. PALONOSETRON. [Concomitant]
     Active Substance: PALONOSETRON HYDROCHLORIDE
     Route: 042
     Dates: start: 20210105, end: 20210105
  12. CEFALEXIN [Concomitant]
     Active Substance: CEPHALEXIN
     Route: 048
     Dates: start: 20210308, end: 20210318
  13. PANTOPRAZOLE [Concomitant]
     Active Substance: PANTOPRAZOLE
     Indication: GASTRIC ULCER
     Dates: start: 20210412
  14. NAB?PACLITAXEL [Suspect]
     Active Substance: PACLITAXEL
     Indication: TRIPLE NEGATIVE BREAST CANCER
     Dosage: LAST DOSE PRIOR TO AE:120 MG?ON 05/JAN/2021, SHE RECEIVED MOST RECENT DOSE OF NAB?PACLITAXEL 120 MG
     Route: 042
     Dates: start: 20201229
  15. GLIFAGE XR [Concomitant]
     Active Substance: METFORMIN HYDROCHLORIDE
     Indication: DIABETES MELLITUS
     Route: 048
     Dates: start: 20201229
  16. PALONOSETRON. [Concomitant]
     Active Substance: PALONOSETRON HYDROCHLORIDE
     Route: 042
     Dates: start: 20201229, end: 20201229
  17. MTIG 7192A [Suspect]
     Active Substance: TIRAGOLUMAB
     Indication: TRIPLE NEGATIVE BREAST CANCER
     Dosage: ON 28/DEC/2020, SHE RECEIVED MOST RECENT DOSE PRIOR TO SECOND OCCURENCE OF INFUSION RELATED REACTION
     Route: 042
     Dates: start: 20201229
  18. EMEND [Concomitant]
     Active Substance: APREPITANT
     Route: 042
     Dates: start: 20210329, end: 20210329
  19. DRAMIN B6 [Concomitant]
     Active Substance: DIMENHYDRINATE\PYRIDOXINE HYDROCHLORIDE
     Dates: start: 20210414, end: 20210423
  20. 3M CAVILON ANTIFUNGAL [Concomitant]
     Active Substance: MICONAZOLE NITRATE
     Indication: SKIN ULCER
     Dates: start: 20210411
  21. PEGFILGRASTIM [Concomitant]
     Active Substance: PEGFILGRASTIM
     Dosage: 6 BEATS/MIN
     Route: 058
     Dates: start: 20210330
  22. CLEXANE [Concomitant]
     Active Substance: ENOXAPARIN SODIUM
     Route: 058
     Dates: start: 20210407

REACTIONS (3)
  - Skin infection [Recovered/Resolved]
  - Infusion related reaction [Recovered/Resolved]
  - Infusion related reaction [Recovered/Resolved]

NARRATIVE: CASE EVENT DATE: 20201229
